FAERS Safety Report 22803901 (Version 2)
Quarter: 2023Q4

REPORT INFORMATION
  Report Type: Report from Study
  Country: AU (occurrence: AU)
  Receive Date: 20230809
  Receipt Date: 20231006
  Transmission Date: 20240110
  Serious: Yes (Hospitalization, Other)
  Sender: FDA-Public Use
  Company Number: AU-TAKEDA-2022TUS086883

PATIENT
  Age: 71 Year
  Sex: Male

DRUGS (1)
  1. VEDOLIZUMAB [Suspect]
     Active Substance: VEDOLIZUMAB
     Indication: Colitis ulcerative
     Dosage: 300 MILLIGRAM
     Route: 042

REACTIONS (3)
  - Hernia [Unknown]
  - Inappropriate schedule of product administration [Unknown]
  - Catheter site injury [Recovered/Resolved]

NARRATIVE: CASE EVENT DATE: 20230218
